FAERS Safety Report 4857803-9 (Version None)
Quarter: 2005Q4

REPORT INFORMATION
  Report Type: 
  Country: None (occurrence: None)
  Receive Date: 20051219
  Receipt Date: 20050407
  Transmission Date: 20060501
  Serious: No
  Sender: FDA-Public Use
  Company Number: US-GLAXOSMITHKLINE-A0553085A

PATIENT
  Age: 52 Year
  Sex: Male

DRUGS (1)
  1. AMERICAN FARE NTS, 21MG STEP 1 [Suspect]
     Dates: start: 20050402, end: 20050405

REACTIONS (3)
  - APPLICATION SITE DERMATITIS [None]
  - APPLICATION SITE ERYTHEMA [None]
  - APPLICATION SITE VESICLES [None]
